FAERS Safety Report 11993437 (Version 2)
Quarter: 2016Q2

REPORT INFORMATION
  Report Type: Spontaneous
  Country: US (occurrence: US)
  Receive Date: 20160203
  Receipt Date: 20160526
  Transmission Date: 20160815
  Serious: Yes (Death, Life-Threatening, Hospitalization, Disabling, Other)
  Sender: FDA-Public Use
  Company Number: US-009507513-1602USA001363

PATIENT
  Sex: Male
  Weight: 113.38 kg

DRUGS (2)
  1. JANUVIA [Suspect]
     Active Substance: SITAGLIPTIN PHOSPHATE
     Indication: TYPE 2 DIABETES MELLITUS
     Dosage: 100 MG, QD
     Route: 048
     Dates: start: 20121001, end: 20130406
  2. JANUMET XR [Suspect]
     Active Substance: METFORMIN HYDROCHLORIDE\SITAGLIPTIN PHOSPHATE
     Indication: TYPE 2 DIABETES MELLITUS
     Dosage: 50/1000 MG BID
     Route: 048
     Dates: start: 20120525, end: 20120624

REACTIONS (17)
  - Small intestine carcinoma [Unknown]
  - Dehydration [Unknown]
  - Osteoarthritis [Unknown]
  - Atelectasis [Unknown]
  - Cholelithiasis [Unknown]
  - Blood calcium increased [Recovering/Resolving]
  - Adenocarcinoma pancreas [Fatal]
  - Metastases to liver [Unknown]
  - Dizziness [Unknown]
  - Blood cholesterol increased [Unknown]
  - Hypertension [Unknown]
  - Diabetic neuropathy [Unknown]
  - Anaemia [Unknown]
  - Gastrooesophageal reflux disease [Unknown]
  - Diabetic enteropathy [Unknown]
  - Diverticulum intestinal [Unknown]
  - Obstruction gastric [Unknown]

NARRATIVE: CASE EVENT DATE: 20121207
